FAERS Safety Report 16742883 (Version 1)
Quarter: 2019Q3

REPORT INFORMATION
  Report Type: Spontaneous
  Country: FR (occurrence: FR)
  Receive Date: 20190827
  Receipt Date: 20190827
  Transmission Date: 20191005
  Serious: Yes (Death, Life-Threatening, Other)
  Sender: FDA-Public Use
  Company Number: FR-AUROBINDO-AUR-APL-2019-056102

PATIENT

DRUGS (9)
  1. CORDARONE [Concomitant]
     Active Substance: AMIODARONE HYDROCHLORIDE
     Indication: CARDIOMYOPATHY
     Dosage: 200 MILLIGRAM, ONCE A DAY
     Route: 065
     Dates: start: 20180726, end: 20190212
  2. CEFOTAXIME [Suspect]
     Active Substance: CEFOTAXIME SODIUM
     Indication: LUNG DISORDER
     Dosage: 3 GRAM, ONCE A DAY
     Route: 065
     Dates: start: 20190206, end: 20190213
  3. ADOPORT [Suspect]
     Active Substance: TACROLIMUS
     Indication: RENAL TRANSPLANT
     Dosage: 2 MILLIGRAM
     Route: 048
     Dates: start: 20190211
  4. ELIQUIS [Concomitant]
     Active Substance: APIXABAN
     Indication: PRODUCT USED FOR UNKNOWN INDICATION
     Dosage: 2.5 MILLIGRAM, ONCE A DAY
     Route: 048
     Dates: start: 20190211, end: 20190212
  5. ADOPORT [Suspect]
     Active Substance: TACROLIMUS
     Dosage: 3 MILLIGRAM
     Route: 048
     Dates: start: 20190204
  6. ELIQUIS [Concomitant]
     Active Substance: APIXABAN
     Indication: ATRIAL FIBRILLATION
     Dosage: 5 MILLIGRAM, ONCE A DAY
     Route: 065
     Dates: start: 20180619, end: 20190211
  7. IODINE. [Concomitant]
     Active Substance: IODINE
     Indication: PRODUCT USED FOR UNKNOWN INDICATION
     Dosage: UNK
     Route: 065
     Dates: start: 20190209, end: 20190209
  8. LEVOFLOXACIN. [Suspect]
     Active Substance: LEVOFLOXACIN
     Indication: LUNG DISORDER
     Dosage: 500 MILLIGRAM, ONCE A DAY
     Route: 065
     Dates: start: 20190208, end: 20190212
  9. ADOPORT [Suspect]
     Active Substance: TACROLIMUS
     Dosage: 2 MILLIGRAM
     Route: 048
     Dates: start: 20180525

REACTIONS (5)
  - Lung disorder [Fatal]
  - Septic shock [Fatal]
  - Cardiogenic shock [Fatal]
  - Psychomotor retardation [Fatal]
  - Acute kidney injury [Fatal]

NARRATIVE: CASE EVENT DATE: 20190204
